FAERS Safety Report 15766691 (Version 1)
Quarter: 2018Q4

REPORT INFORMATION
  Report Type: Spontaneous
  Country: US (occurrence: US)
  Receive Date: 20181227
  Receipt Date: 20181227
  Transmission Date: 20190205
  Serious: No
  Sender: FDA-Public Use
  Company Number: US-JNJFOC-20181203892

PATIENT
  Sex: Male
  Weight: 81.65 kg

DRUGS (3)
  1. BIOTIN [Concomitant]
     Active Substance: BIOTIN
     Route: 061
  2. MENS ROGAINE EXTRA STRENGTH [Suspect]
     Active Substance: MINOXIDIL
     Indication: ALOPECIA
     Dosage: HALF A CAP FULL STARTED ONCE A DAY
     Route: 061
  3. MENS ROGAINE EXTRA STRENGTH [Suspect]
     Active Substance: MINOXIDIL
     Route: 061

REACTIONS (5)
  - Inappropriate schedule of product administration [Unknown]
  - Contraindicated product administered [Unknown]
  - Underdose [Unknown]
  - Headache [Not Recovered/Not Resolved]
  - Tension headache [Not Recovered/Not Resolved]
